FAERS Safety Report 11627033 (Version 3)
Quarter: 2015Q4

REPORT INFORMATION
  Report Type: Spontaneous
  Country: IT (occurrence: IT)
  Receive Date: 20151013
  Receipt Date: 20151014
  Transmission Date: 20160304
  Serious: Yes (Other)
  Sender: FDA-Public Use
  Company Number: IT-JNJFOC-20151000727

PATIENT

DRUGS (6)
  1. VINBLASTINE [Suspect]
     Active Substance: VINBLASTINE
     Indication: HODGKIN^S DISEASE
     Route: 042
  2. LENOGRASTIM [Suspect]
     Active Substance: LENOGRASTIM
     Indication: HODGKIN^S DISEASE
     Route: 058
  3. BLEOMYCIN [Suspect]
     Active Substance: BLEOMYCIN SULFATE
     Indication: HODGKIN^S DISEASE
     Route: 042
  4. DOXORUBICIN [Suspect]
     Active Substance: DOXORUBICIN
     Indication: HODGKIN^S DISEASE
     Route: 042
  5. DOXORUBICIN [Suspect]
     Active Substance: DOXORUBICIN
     Indication: HODGKIN^S DISEASE
     Route: 042
  6. DACARBAZINE. [Suspect]
     Active Substance: DACARBAZINE
     Indication: HODGKIN^S DISEASE
     Route: 042

REACTIONS (24)
  - Infection [Unknown]
  - Thrombocytopenia [Unknown]
  - Skin toxicity [Unknown]
  - Autonomic neuropathy [Unknown]
  - Constipation [Unknown]
  - Peripheral sensory neuropathy [Unknown]
  - Onycholysis [Unknown]
  - Enteritis [Unknown]
  - Palmar-plantar erythrodysaesthesia syndrome [Unknown]
  - Neutropenia [Unknown]
  - Cranial nerve disorder [Unknown]
  - Pneumonitis [Unknown]
  - Nail disorder [Unknown]
  - Left ventricular dysfunction [Unknown]
  - Vomiting [Unknown]
  - Febrile neutropenia [Unknown]
  - Cardiotoxicity [Unknown]
  - Haemorrhoids [Unknown]
  - Pulmonary toxicity [Unknown]
  - Anaemia [Unknown]
  - Sinus tachycardia [Unknown]
  - Onychomadesis [Unknown]
  - Stomatitis [Unknown]
  - Proctitis [Unknown]
